FAERS Safety Report 19996358 (Version 1)
Quarter: 2021Q4

REPORT INFORMATION
  Report Type: Spontaneous
  Country: US (occurrence: US)
  Receive Date: 20211026
  Receipt Date: 20211026
  Transmission Date: 20220303
  Serious: Yes (Hospitalization, Other)
  Sender: FDA-Public Use
  Company Number: None

PATIENT
  Age: 21 Year
  Sex: Female
  Weight: 64.35 kg

DRUGS (1)
  1. REGEN-COV [Suspect]
     Active Substance: CASIRIVIMAB\IMDEVIMAB
     Indication: COVID-19
     Dosage: ?          OTHER FREQUENCY:ONETIME;
     Route: 041

REACTIONS (8)
  - Maternal exposure during pregnancy [None]
  - Dyspnoea [None]
  - Pneumonia [None]
  - Acute kidney injury [None]
  - Diabetic ketoacidosis [None]
  - Anaemia [None]
  - Foetal death [None]
  - Foetal exposure during pregnancy [None]

NARRATIVE: CASE EVENT DATE: 20211009
